FAERS Safety Report 20929608 (Version 1)
Quarter: 2022Q2

REPORT INFORMATION
  Report Type: Spontaneous
  Country: FR (occurrence: FR)
  Receive Date: 20220608
  Receipt Date: 20220608
  Transmission Date: 20220720
  Serious: Yes (Hospitalization)
  Sender: FDA-Public Use
  Company Number: FR-AFSSAPS-MA20213565

PATIENT
  Age: 15 Year
  Sex: Female

DRUGS (2)
  1. DESLORATADINE [Suspect]
     Active Substance: DESLORATADINE
     Indication: Medication error
     Dosage: 25 MILLIGRAM, SINGLE TAKE
     Route: 048
     Dates: start: 20210903
  2. IMODIUM [Concomitant]
     Active Substance: LOPERAMIDE HYDROCHLORIDE
     Indication: Medication error
     Dosage: 4 DOSAGE FORM, SINGLE TAKE
     Route: 048
     Dates: start: 20210903

REACTIONS (1)
  - Somnolence [Recovered/Resolved]

NARRATIVE: CASE EVENT DATE: 20210903
